FAERS Safety Report 15825670 (Version 1)
Quarter: 2019Q1

REPORT INFORMATION
  Report Type: Report from Study
  Country: US (occurrence: US)
  Receive Date: 20190115
  Receipt Date: 20190115
  Transmission Date: 20190417
  Serious: Yes (Other)
  Sender: FDA-Public Use
  Company Number: US-SA-2018SA389688

PATIENT
  Age: 52 Year
  Sex: Female

DRUGS (1)
  1. INSULIN GLARGINE [Suspect]
     Active Substance: INSULIN GLARGINE
     Indication: TYPE 2 DIABETES MELLITUS
     Dosage: 27 U, UNK
     Dates: start: 20181206

REACTIONS (3)
  - Bipolar disorder [Unknown]
  - Contusion [Unknown]
  - Swelling face [Unknown]

NARRATIVE: CASE EVENT DATE: 20181206
